FAERS Safety Report 10261048 (Version 3)
Quarter: 2014Q4

REPORT INFORMATION
  Report Type: Spontaneous
  Country: GB (occurrence: GB)
  Receive Date: 20140626
  Receipt Date: 20141112
  Transmission Date: 20150528
  Serious: Yes (Hospitalization, Disabling, Other)
  Sender: FDA-Public Use
  Company Number: GB-DRREDDYS-GER/UKI/14/0041317

PATIENT
  Age: 65 Year
  Sex: Male
  Weight: 88.9 kg

DRUGS (6)
  1. ALLOPURINOL. [Concomitant]
     Active Substance: ALLOPURINOL
     Indication: PRODUCT USED FOR UNKNOWN INDICATION
  2. BENDROFLUMETHIAZIDE [Concomitant]
     Active Substance: BENDROFLUMETHIAZIDE
     Indication: PRODUCT USED FOR UNKNOWN INDICATION
  3. LISINOPRIL. [Concomitant]
     Active Substance: LISINOPRIL
     Indication: PRODUCT USED FOR UNKNOWN INDICATION
  4. CIPROFLOXACIN. [Suspect]
     Active Substance: CIPROFLOXACIN
     Indication: PRODUCT USED FOR UNKNOWN INDICATION
     Route: 048
     Dates: start: 20140429, end: 20140501
  5. MUCODYNE [Concomitant]
     Active Substance: CARBOCYSTEINE
     Indication: PRODUCT USED FOR UNKNOWN INDICATION
  6. SALBUTAMOL [Concomitant]
     Active Substance: ALBUTEROL
     Indication: PRODUCT USED FOR UNKNOWN INDICATION

REACTIONS (29)
  - Dyspnoea [Recovered/Resolved]
  - Dizziness [Recovered/Resolved]
  - Sweat gland disorder [Recovered/Resolved]
  - Malaise [Not Recovered/Not Resolved]
  - Syncope [Recovered/Resolved]
  - Diplopia [Recovered/Resolved]
  - Memory impairment [Recovered/Resolved with Sequelae]
  - Seizure [Recovered/Resolved]
  - Tremor [Recovering/Resolving]
  - Tachycardia [Recovered/Resolved]
  - Paraesthesia [Recovered/Resolved]
  - Chromaturia [Recovered/Resolved]
  - Blood urine present [Recovered/Resolved]
  - Confusional state [Unknown]
  - Ataxia [Recovered/Resolved]
  - Fatigue [Recovered/Resolved with Sequelae]
  - Hallucination [Recovered/Resolved]
  - Gait disturbance [Recovered/Resolved]
  - Impaired work ability [Unknown]
  - Amnesia [Unknown]
  - Bradycardia [Recovered/Resolved with Sequelae]
  - Thirst [Recovered/Resolved]
  - Anxiety [Recovered/Resolved]
  - Balance disorder [Recovered/Resolved]
  - Delusion [Recovered/Resolved]
  - Dysarthria [Recovered/Resolved]
  - Disorientation [Recovered/Resolved]
  - Temperature intolerance [Recovered/Resolved]
  - Impaired driving ability [Unknown]

NARRATIVE: CASE EVENT DATE: 20140429
